FAERS Safety Report 8197182-5 (Version None)
Quarter: 2012Q1

REPORT INFORMATION
  Report Type: 
  Country: None (occurrence: None)
  Receive Date: 20120309
  Receipt Date: 20120305
  Transmission Date: 20120608
  Serious: Yes (Congenital Anomaly, Other)
  Sender: FDA-Public Use
  Company Number: US-PFIZER INC-2012059909

PATIENT
  Sex: Female

DRUGS (5)
  1. TYLENOL [Concomitant]
     Dosage: AT NIGHT
     Route: 064
  2. ZOFRAN [Concomitant]
     Indication: NAUSEA
     Dosage: UNK
     Route: 064
  3. ZOFRAN [Concomitant]
     Indication: VOMITING
  4. ZOLOFT [Suspect]
     Indication: ANXIETY DISORDER
     Dosage: 75 MG, DAILY
     Route: 064
  5. ZANTAC [Concomitant]
     Indication: GASTROOESOPHAGEAL REFLUX DISEASE
     Dosage: 75 MG, DAILY
     Route: 064

REACTIONS (5)
  - SKULL MALFORMATION [None]
  - MATERNAL EXPOSURE TIMING UNSPECIFIED [None]
  - CONGENITAL HYDROCEPHALUS [None]
  - BRAIN MALFORMATION [None]
  - SPINA BIFIDA [None]
